FAERS Safety Report 9172274 (Version 1)
Quarter: 2013Q1

REPORT INFORMATION
  Report Type: Spontaneous
  Country: US (occurrence: US)
  Receive Date: 20130319
  Receipt Date: 20130319
  Transmission Date: 20140127
  Serious: Yes (Other)
  Sender: FDA-Public Use
  Company Number: US-BAYER-2013-033291

PATIENT
  Age: 86 Year
  Sex: Male
  Weight: 61.22 kg

DRUGS (4)
  1. BAYER ASPIRIN REGIMEN ADULT LOW STRENGTH [Suspect]
     Indication: ISCHAEMIC HEART DISEASE PROPHYLAXIS
     Dosage: 1 DF, PRN
     Route: 048
     Dates: start: 2008
  2. PLAVIX [Interacting]
  3. MEVACOR [Concomitant]
  4. PREVACID [Concomitant]

REACTIONS (1)
  - Haemorrhage [Recovered/Resolved]
